FAERS Safety Report 17680775 (Version 1)
Quarter: 2020Q2

REPORT INFORMATION
  Report Type: Spontaneous
  Country: US (occurrence: US)
  Receive Date: 20200417
  Receipt Date: 20200417
  Transmission Date: 20200714
  Serious: No
  Sender: FDA-Public Use
  Company Number: US-SHIRE-US202013754

PATIENT
  Sex: Male

DRUGS (1)
  1. CUVITRU [Suspect]
     Active Substance: HUMAN IMMUNOGLOBULIN G
     Indication: PRODUCT USED FOR UNKNOWN INDICATION
     Dosage: UNK UNK, 1X/WEEK
     Route: 058
     Dates: start: 20200414

REACTIONS (4)
  - Skin tightness [Unknown]
  - Abdominal distension [Unknown]
  - Paraesthesia [Unknown]
  - Pain [Unknown]
